FAERS Safety Report 20420731 (Version 17)
Quarter: 2022Q2

REPORT INFORMATION
  Report Type: Spontaneous
  Country: US (occurrence: US)
  Receive Date: 20220203
  Receipt Date: 20220517
  Transmission Date: 20220721
  Serious: No
  Sender: FDA-Public Use
  Company Number: US-UNITED THERAPEUTICS-UNT-2022-002105

PATIENT
  Age: 73 Year
  Sex: Male
  Weight: 112.93 kg

DRUGS (5)
  1. REMODULIN [Suspect]
     Active Substance: TREPROSTINIL
     Indication: Pulmonary arterial hypertension
     Dosage: UNK UNK, CONTINUING
     Route: 058
     Dates: start: 20211013
  2. REMODULIN [Suspect]
     Active Substance: TREPROSTINIL
     Dosage: 0.030 ?G/KG (PREFILLED WITH 2.8 ML PER CASSETTE AT PUMP RATE 30MCL/ HOUR), CONTINUING
     Route: 058
  3. REMODULIN [Suspect]
     Active Substance: TREPROSTINIL
     Dosage: UNK UNK, CONTINUING
     Route: 058
  4. LEXAPRO [Suspect]
     Active Substance: ESCITALOPRAM OXALATE
     Indication: Product used for unknown indication
     Dosage: UNK
     Route: 065
  5. SILDENAFIL [Concomitant]
     Active Substance: SILDENAFIL
     Indication: Product used for unknown indication
     Dosage: UNK
     Route: 065

REACTIONS (39)
  - Withdrawal syndrome [Unknown]
  - Dyspepsia [Unknown]
  - Insomnia [Unknown]
  - Device failure [Not Recovered/Not Resolved]
  - Device issue [Unknown]
  - Pruritus [Unknown]
  - Infusion site erythema [Unknown]
  - Device power source issue [Unknown]
  - Device leakage [Unknown]
  - Device infusion issue [Unknown]
  - Device malfunction [Unknown]
  - Infusion site discomfort [Recovering/Resolving]
  - Weight decreased [Unknown]
  - Device use error [Unknown]
  - Device difficult to use [Unknown]
  - Overdose [Unknown]
  - Device delivery system issue [Unknown]
  - Product administration interrupted [Recovered/Resolved]
  - Dizziness [Unknown]
  - Diarrhoea [Unknown]
  - Malaise [Unknown]
  - Infusion site rash [Not Recovered/Not Resolved]
  - Infusion site pain [Not Recovered/Not Resolved]
  - Device power source issue [Unknown]
  - Device failure [Unknown]
  - Infusion site inflammation [Not Recovered/Not Resolved]
  - Device malfunction [Unknown]
  - Infusion site scab [Unknown]
  - Device use issue [Unknown]
  - Device maintenance issue [Unknown]
  - Decreased appetite [Unknown]
  - Dizziness exertional [Unknown]
  - Infusion site pruritus [Unknown]
  - Device leakage [Unknown]
  - Device difficult to use [Unknown]
  - Device adhesion issue [Unknown]
  - Infusion site discharge [Unknown]
  - Infusion site vesicles [Unknown]
  - Device leakage [Unknown]

NARRATIVE: CASE EVENT DATE: 20220101
